FAERS Safety Report 4691861-X (Version None)
Quarter: 2005Q2

REPORT INFORMATION
  Report Type: 
  Country: None (occurrence: None)
  Receive Date: 20050614
  Receipt Date: 20050614
  Transmission Date: 20051028
  Serious: Yes (Disabling)
  Sender: FDA-Public Use
  Company Number: None

PATIENT
  Age: 43 Year
  Sex: Female
  Weight: 54.4316 kg

DRUGS (1)
  1. MELLARIL [Suspect]
     Indication: POST-TRAUMATIC STRESS DISORDER
     Dosage: 25 MGS

REACTIONS (5)
  - ASTHENIA [None]
  - DEPRESSED LEVEL OF CONSCIOUSNESS [None]
  - DYSSTASIA [None]
  - FEELING ABNORMAL [None]
  - NAUSEA [None]
